FAERS Safety Report 24971011 (Version 1)
Quarter: 2025Q1

REPORT INFORMATION
  Report Type: Report from Study
  Country: US (occurrence: US)
  Receive Date: 20250214
  Receipt Date: 20250214
  Transmission Date: 20250409
  Serious: Yes (Other)
  Sender: AVADEL CNS PHARMACEUTICALS, LLC
  Company Number: US-AVADEL CNS PHARMACEUTICALS, LLC-2025AVA00271

PATIENT
  Age: 36 Year
  Sex: Female
  Weight: 57.596 kg

DRUGS (6)
  1. LUMRYZ [Suspect]
     Active Substance: SODIUM OXYBATE
     Indication: Narcolepsy
     Route: 048
     Dates: start: 20250127, end: 20250127
  2. LUMRYZ [Suspect]
     Active Substance: SODIUM OXYBATE
     Indication: Cataplexy
  3. AMITRIPTYLINE [Concomitant]
     Active Substance: AMITRIPTYLINE
  4. CELEXA [Concomitant]
     Active Substance: CITALOPRAM HYDROBROMIDE
  5. SUNOSI [Concomitant]
     Active Substance: SOLRIAMFETOL
  6. UNSPECIFIED INGREDIENT [Concomitant]
     Active Substance: UNSPECIFIED INGREDIENT

REACTIONS (13)
  - Seizure [Recovered/Resolved]
  - Loss of consciousness [Recovered/Resolved]
  - Feeling of body temperature change [Recovered/Resolved]
  - Vertigo [Recovered/Resolved]
  - Initial insomnia [Unknown]
  - Retching [Unknown]
  - Hypoaesthesia [Unknown]
  - Nervousness [Unknown]
  - Nausea [Recovered/Resolved]
  - Nocturia [Unknown]
  - Hypersensitivity [Recovered/Resolved]
  - Tremor [Unknown]
  - Anxiety [Unknown]

NARRATIVE: CASE EVENT DATE: 20250127
